FAERS Safety Report 4756514-8 (Version None)
Quarter: 2005Q3

REPORT INFORMATION
  Report Type: 
  Country: None (occurrence: None)
  Receive Date: 20050830
  Receipt Date: 20050718
  Transmission Date: 20060218
  Serious: No
  Sender: FDA-Public Use
  Company Number: US-GLAXOSMITHKLINE-A0566949A

PATIENT
  Sex: Male

DRUGS (2)
  1. WELLBUTRIN XL [Suspect]
     Indication: DEPRESSION
     Dosage: 150MG THREE TIMES PER DAY
     Route: 048
  2. SSRI [Suspect]
     Indication: DEPRESSION
     Route: 065

REACTIONS (6)
  - DRUG INEFFECTIVE [None]
  - DRY MOUTH [None]
  - LIBIDO DECREASED [None]
  - MEDICATION ERROR [None]
  - OVERDOSE [None]
  - SEXUAL DYSFUNCTION [None]
